FAERS Safety Report 6422265-7 (Version None)
Quarter: 2009Q4

REPORT INFORMATION
  Report Type: 
  Country: None (occurrence: None)
  Receive Date: 20091030
  Receipt Date: 20091020
  Transmission Date: 20100525
  Serious: Yes (Life-Threatening, Other)
  Sender: FDA-Public Use
  Company Number: CA-JNJCH-2009027958

PATIENT
  Age: 7 Year
  Sex: Male

DRUGS (1)
  1. BENYLIN DM-D FOR CHILDREN [Suspect]
     Indication: COUGH
     Dosage: TEXT:UNSPECIFIED
     Route: 048
     Dates: start: 20091020, end: 20091020

REACTIONS (3)
  - CHOKING [None]
  - FOREIGN BODY [None]
  - PRODUCT QUALITY ISSUE [None]
